FAERS Safety Report 12216862 (Version 1)
Quarter: 2016Q1

REPORT INFORMATION
  Report Type: Other
  Country: GB (occurrence: GB)
  Receive Date: 20160329
  Receipt Date: 20160329
  Transmission Date: 20160526
  Serious: Yes (Hospitalization)
  Sender: FDA-Public Use
  Company Number: GB-LUPIN PHARMACEUTICALS INC.-2016-01148

PATIENT
  Age: 47 Year
  Sex: Female

DRUGS (7)
  1. LAMOTRIGINE. [Interacting]
     Active Substance: LAMOTRIGINE
     Dosage: 75 MG
     Route: 065
  2. SODIUM VALPROATE [Interacting]
     Active Substance: VALPROATE SODIUM
     Indication: PROPHYLAXIS
     Dosage: 1400 MG
     Route: 065
  3. PHENYTOIN. [Concomitant]
     Active Substance: PHENYTOIN
     Indication: PROPHYLAXIS
     Dosage: 450 MG
     Route: 065
  4. LAMOTRIGINE. [Suspect]
     Active Substance: LAMOTRIGINE
     Indication: PROPHYLAXIS
     Dosage: 400 MG
     Route: 065
  5. LAMOTRIGINE. [Interacting]
     Active Substance: LAMOTRIGINE
     Dosage: 150 MG
     Route: 065
  6. SODIUM VALPROATE [Interacting]
     Active Substance: VALPROATE SODIUM
     Dosage: 1000 MG
     Route: 065
  7. LAMOTRIGINE. [Interacting]
     Active Substance: LAMOTRIGINE
     Dosage: 200 MG
     Route: 065

REACTIONS (2)
  - Encephalopathy [Recovering/Resolving]
  - Drug interaction [Unknown]
